FAERS Safety Report 5994203-2 (Version None)
Quarter: 2008Q4

REPORT INFORMATION
  Report Type: 
  Country: None (occurrence: None)
  Receive Date: 20081212
  Receipt Date: 20080930
  Transmission Date: 20090506
  Serious: No
  Sender: FDA-Public Use
  Company Number: US-ABBOTT-08P-163-0474057-00

PATIENT
  Sex: Female
  Weight: 77 kg

DRUGS (13)
  1. HUMIRA [Suspect]
     Indication: PSORIATIC ARTHROPATHY
     Route: 058
     Dates: start: 20080401, end: 20080801
  2. HUMIRA [Suspect]
     Route: 058
     Dates: start: 20080801
  3. ZOLPIDEM TARTRATE [Concomitant]
     Indication: SLEEP DISORDER THERAPY
     Dosage: AT NIGHT
     Route: 048
     Dates: start: 20060101
  4. METHOTREXATE [Concomitant]
     Indication: PSORIATIC ARTHROPATHY
     Dosage: 25MG/0.88CC WEEKLY
     Route: 050
     Dates: start: 20070101
  5. ALLEGRA D 24 HOUR [Concomitant]
     Indication: SEASONAL ALLERGY
     Route: 048
     Dates: start: 20050101
  6. FEMHART [Concomitant]
     Indication: HORMONE REPLACEMENT THERAPY
     Dosage: 1/5 MCG
     Route: 048
  7. OMEPRAZOLE [Concomitant]
     Indication: GASTROOESOPHAGEAL REFLUX DISEASE
     Route: 048
  8. FOLIC ACID [Concomitant]
     Indication: VITAMIN SUPPLEMENTATION
     Route: 048
  9. HYDROCODONE BITARTRATE [Concomitant]
     Indication: PAIN
     Dosage: UP TO 3 DAILY 7.5/750 MG
     Route: 048
     Dates: start: 20040101
  10. HYDROCODONE BITARTRATE [Concomitant]
     Indication: BACK DISORDER
  11. NAPROXEN [Concomitant]
     Indication: ARTHRITIS
     Route: 048
     Dates: start: 20070101
  12. CARISOPRODOL [Concomitant]
     Indication: MUSCLE RELAXANT THERAPY
     Route: 048
     Dates: start: 20030101
  13. DULOXETINE HYDROCHLORIDE [Concomitant]
     Indication: DEPRESSION
     Route: 048
     Dates: start: 20060101

REACTIONS (6)
  - ACCIDENTAL EXPOSURE [None]
  - ARTHRALGIA [None]
  - FATIGUE [None]
  - INJECTION SITE HAEMORRHAGE [None]
  - INJECTION SITE PAIN [None]
  - NO THERAPEUTIC RESPONSE [None]
